FAERS Safety Report 10078975 (Version 2)
Quarter: 2014Q2

REPORT INFORMATION
  Report Type: Spontaneous
  Country: US (occurrence: US)
  Receive Date: 20140415
  Receipt Date: 20140529
  Transmission Date: 20141212
  Serious: No
  Sender: FDA-Public Use
  Company Number: US-009507513-1404USA007934

PATIENT
  Sex: Male
  Weight: 81.63 kg

DRUGS (1)
  1. MIRALAX [Suspect]
     Indication: CONSTIPATION
     Dosage: UNK, UNKNOWN
     Route: 048
     Dates: start: 20140228

REACTIONS (1)
  - Headache [Unknown]
